FAERS Safety Report 5286258-8 (Version None)
Quarter: 2007Q2

REPORT INFORMATION
  Report Type: 
  Country: None (occurrence: None)
  Receive Date: 20070404
  Receipt Date: 20070321
  Transmission Date: 20071010
  Serious: Yes (Death, Other)
  Sender: FDA-Public Use
  Company Number: ES-JNJFOC-20070307192

PATIENT
  Age: 44 Year

DRUGS (1)
  1. REMICADE [Suspect]
     Indication: SCLERODERMA
     Route: 042

REACTIONS (2)
  - ANAPHYLACTIC SHOCK [None]
  - PNEUMONITIS [None]
